FAERS Safety Report 8304438-1 (Version None)
Quarter: 2012Q2

REPORT INFORMATION
  Report Type: 
  Country: None (occurrence: None)
  Receive Date: 20120423
  Receipt Date: 20120228
  Transmission Date: 20120825
  Serious: No
  Sender: FDA-Public Use
  Company Number: US-COVIDIEN/TYCO HEALTHCARE/MALLINCKRODT-T201200796

PATIENT
  Sex: Female

DRUGS (2)
  1. FOCALIN [Concomitant]
     Dosage: UNK
  2. METHYLIN [Suspect]
     Indication: DEPRESSION
     Dosage: 4 TABLETS DAILY; POSSIBLY AS MANY AS 15 TABS DAILY
     Dates: start: 20110101

REACTIONS (5)
  - ANXIETY [None]
  - WRONG TECHNIQUE IN DRUG USAGE PROCESS [None]
  - INTENTIONAL DRUG MISUSE [None]
  - AGGRESSION [None]
  - INCORRECT ROUTE OF DRUG ADMINISTRATION [None]
